FAERS Safety Report 23464680 (Version 2)
Quarter: 2024Q1

REPORT INFORMATION
  Report Type: Spontaneous
  Country: CA (occurrence: None)
  Receive Date: 20240201
  Receipt Date: 20240313
  Transmission Date: 20240410
  Serious: Yes (Other)
  Sender: FDA-Public Use
  Company Number: 2024A020676

PATIENT
  Age: 29950 Day
  Sex: Male

DRUGS (1)
  1. SYMBICORT [Suspect]
     Active Substance: BUDESONIDE\FORMOTEROL FUMARATE DIHYDRATE
     Indication: Prophylaxis
     Dosage: 200/6UG/D TWO TIMES A DAY
     Route: 055

REACTIONS (6)
  - Cardiac failure [Unknown]
  - Respiratory disorder [Unknown]
  - Drug dose omission by device [Unknown]
  - Off label use [Unknown]
  - Product packaging quantity issue [Unknown]
  - Product use issue [Unknown]
